FAERS Safety Report 17525670 (Version 1)
Quarter: 2020Q1

REPORT INFORMATION
  Report Type: Spontaneous
  Country: DE (occurrence: DE)
  Receive Date: 20200310
  Receipt Date: 20200310
  Transmission Date: 20200409
  Serious: Yes (Life-Threatening, Hospitalization)
  Sender: FDA-Public Use
  Company Number: DE-ALLERGAN-S05-GER-00139-01

PATIENT
  Sex: Female
  Weight: 60 kg

DRUGS (6)
  1. SPIZEF [Concomitant]
     Dosage: 1 MG, TID
     Route: 042
     Dates: start: 20041108
  2. FAVISTAN [Suspect]
     Active Substance: METHIMAZOLE
     Indication: HYPERTHYROIDISM
     Dosage: UNKNOWN
     Dates: start: 200102, end: 20041109
  3. EUSAPRIM [Suspect]
     Active Substance: SULFAMETHOXAZOLE\TRIMETHOPRIM
     Indication: URINARY TRACT INFECTION
     Dosage: UNKNOWN
     Dates: start: 20041027, end: 20041031
  4. CIPRAMIL TABLETS [Suspect]
     Active Substance: CITALOPRAM HYDROBROMIDE
     Indication: ADJUSTMENT DISORDER WITH DEPRESSED MOOD
     Dosage: 20 MG, QD
     Dates: start: 20041101, end: 20041109
  5. FEMARA [Concomitant]
     Active Substance: LETROZOLE
     Indication: BREAST CANCER
     Dosage: UNKNOWN
     Dates: end: 20041109
  6. FORTECORTIN [Concomitant]
     Active Substance: DEXAMETHASONE
     Dosage: 2 MG, TID
     Route: 048
     Dates: start: 20041108

REACTIONS (1)
  - Agranulocytosis [Recovered/Resolved]

NARRATIVE: CASE EVENT DATE: 20041109
